FAERS Safety Report 20506500 (Version 3)
Quarter: 2023Q4

REPORT INFORMATION
  Report Type: Other
  Country: ES (occurrence: None)
  Receive Date: 20220223
  Receipt Date: 20231117
  Transmission Date: 20240110
  Serious: Yes (Other)
  Sender: FDA-Public Use
  Company Number: ES-ROCHE-3029057

PATIENT

DRUGS (1)
  1. ALTEPLASE [Suspect]
     Active Substance: ALTEPLASE
     Indication: Ischaemic stroke
     Dosage: 0.225 MG/KG?(MAXIMUM DOSE, 22.5 MG) INFUSED OVER 30 MINUTES (AT TRIAL?ONSET) OR OVER 15 MINUTES
     Route: 013

REACTIONS (68)
  - Cerebral haemorrhage [Unknown]
  - Atrioventricular block second degree [Unknown]
  - Cardiac failure [Unknown]
  - Cardiac arrest [Unknown]
  - Cerebrovascular accident [Unknown]
  - Cerebrovascular accident [Unknown]
  - Deep vein thrombosis [Unknown]
  - Thoracic haemorrhage [Unknown]
  - Neurological symptom [Unknown]
  - Respiratory tract infection [Unknown]
  - Pulmonary embolism [Unknown]
  - Pneumonia aspiration [Unknown]
  - Myocardial infarction [Unknown]
  - Pneumonia [Unknown]
  - Cerebral thrombosis [Unknown]
  - Subarachnoid haemorrhage [Unknown]
  - Urinary retention [Unknown]
  - Craniocerebral injury [Unknown]
  - Staphylococcal infection [Unknown]
  - Atrial fibrillation [Unknown]
  - Cerebral reperfusion injury [Unknown]
  - Device embolisation [Unknown]
  - Hypoxia [Unknown]
  - Hyperkalaemia [Unknown]
  - Syncope [Unknown]
  - Epilepsy [Unknown]
  - Cellulitis [Unknown]
  - Bacteraemia [Unknown]
  - Diabetes mellitus [Unknown]
  - Hyperkalaemia [Unknown]
  - COVID-19 [Unknown]
  - Headache [Unknown]
  - Anaemia [Unknown]
  - Thrombocytopenia [Unknown]
  - Atrial flutter [Unknown]
  - Presyncope [Unknown]
  - Tachycardia [Unknown]
  - Hypothyroidism [Unknown]
  - Ocular hyperaemia [Unknown]
  - Vitreous floaters [Unknown]
  - Constipation [Unknown]
  - Dyspepsia [Unknown]
  - Dysphagia [Unknown]
  - Nausea [Unknown]
  - Odynophagia [Unknown]
  - Vomiting [Unknown]
  - Chest pain [Unknown]
  - Pyrexia [Unknown]
  - Conjunctivitis [Unknown]
  - Gastroenteritis [Unknown]
  - Urinary tract infection [Unknown]
  - Vulvovaginitis [Unknown]
  - Joint injury [Unknown]
  - Dyslipidaemia [Unknown]
  - Hyperglycaemia [Unknown]
  - Pain in extremity [Unknown]
  - Agitation [Unknown]
  - Haematuria [Unknown]
  - Pruritus genital [Unknown]
  - Dermatitis [Unknown]
  - Rash [Unknown]
  - Urticaria [Unknown]
  - Cardiac ablation [Unknown]
  - Cardioversion [Unknown]
  - Haematoma [Unknown]
  - Hypertension [Unknown]
  - Phlebitis [Unknown]
  - Vasospasm [Unknown]
